FAERS Safety Report 9343815 (Version 1)
Quarter: 2013Q2

REPORT INFORMATION
  Report Type: Spontaneous
  Country: FI (occurrence: FI)
  Receive Date: 20130612
  Receipt Date: 20130612
  Transmission Date: 20140414
  Serious: Yes (Hospitalization)
  Sender: FDA-Public Use
  Company Number: FI-JNJFOC-20130602218

PATIENT
  Age: 71 Year
  Sex: Male

DRUGS (6)
  1. SIMPONI [Suspect]
     Indication: RHEUMATOID ARTHRITIS
     Route: 058
     Dates: start: 201001, end: 201303
  2. TREXAN METHOTREXATE [Suspect]
     Indication: RHEUMATOID ARTHRITIS
     Route: 048
     Dates: start: 200804, end: 201303
  3. PREDNISOLON [Concomitant]
     Indication: RHEUMATOID ARTHRITIS
     Dosage: 2,5 MG X1
     Route: 065
  4. SALAZOPYRIN EN [Concomitant]
     Indication: RHEUMATOID ARTHRITIS
     Dosage: 1X2
     Route: 065
  5. RAMIPRIL [Concomitant]
     Indication: HYPERTENSION
     Dosage: X 1
     Route: 065
  6. BISOPROLOL [Concomitant]
     Indication: HYPERTENSION
     Dosage: X 1
     Route: 065

REACTIONS (1)
  - Lung disorder [Recovered/Resolved]
